FAERS Safety Report 13942326 (Version 1)
Quarter: 2017Q3

REPORT INFORMATION
  Report Type: Spontaneous
  Country: US (occurrence: US)
  Receive Date: 20170906
  Receipt Date: 20170906
  Transmission Date: 20171127
  Serious: Yes (Other)
  Sender: FDA-Public Use
  Company Number: US-PFIZER INC-2017386315

PATIENT
  Age: 61 Year
  Sex: Male

DRUGS (1)
  1. XELJANZ XR [Suspect]
     Active Substance: TOFACITINIB CITRATE
     Dosage: 11 MG, UNK

REACTIONS (7)
  - Abdominal hernia [Unknown]
  - Pulmonary hypertension [Unknown]
  - Peripheral swelling [Not Recovered/Not Resolved]
  - Carpal tunnel syndrome [Unknown]
  - Dyspepsia [Unknown]
  - Raynaud^s phenomenon [Unknown]
  - Interstitial lung disease [Unknown]
